FAERS Safety Report 10160025 (Version 1)
Quarter: 2014Q2

REPORT INFORMATION
  Report Type: Spontaneous
  Country: US (occurrence: US)
  Receive Date: 20140508
  Receipt Date: 20140508
  Transmission Date: 20141212
  Serious: No
  Sender: FDA-Public Use
  Company Number: US-GLAXOSMITHKLINE-A1056410A

PATIENT
  Age: 53 Year
  Sex: Female
  Weight: 77.3 kg

DRUGS (4)
  1. TYKERB [Suspect]
     Indication: BREAST CANCER
     Dosage: 1000MG PER DAY
     Route: 048
     Dates: start: 20121025, end: 201401
  2. IRON [Concomitant]
  3. AMLODIPINE [Concomitant]
  4. VITAMIN D [Concomitant]

REACTIONS (1)
  - Disease progression [Unknown]
